FAERS Safety Report 18895027 (Version 2)
Quarter: 2021Q1

REPORT INFORMATION
  Report Type: Spontaneous
  Country: UA (occurrence: UA)
  Receive Date: 20210215
  Receipt Date: 20210219
  Transmission Date: 20210420
  Serious: Yes (Other)
  Sender: FDA-Public Use
  Company Number: UA-BAUSCH-BL-2021-005447

PATIENT
  Age: 36 Year
  Sex: Female

DRUGS (1)
  1. ALFA NORMIX 200MG [Suspect]
     Active Substance: RIFAXIMIN
     Indication: IRRITABLE BOWEL SYNDROME
     Route: 048

REACTIONS (2)
  - Seizure [Recovered/Resolved]
  - Intentional product use issue [Recovered/Resolved]
